FAERS Safety Report 9230003 (Version 1)
Quarter: 2013Q2

REPORT INFORMATION
  Report Type: Spontaneous
  Country: DE (occurrence: DE)
  Receive Date: 20130415
  Receipt Date: 20130415
  Transmission Date: 20140414
  Serious: Yes (Life-Threatening)
  Sender: FDA-Public Use
  Company Number: DE-ACCORD-017179

PATIENT
  Age: 35 Year
  Sex: Female
  Weight: 58 kg

DRUGS (5)
  1. FORTECORTIN [Concomitant]
  2. KEVATRIL [Concomitant]
  3. CARBOPLATIN [Suspect]
     Indication: TRANSITIONAL CELL CARCINOMA
     Dosage: ~ 60 MIN.
     Route: 042
     Dates: start: 20130326
  4. GEMCITABINE [Suspect]
     Indication: TRANSITIONAL CELL CARCINOMA
     Dosage: GIVEN 2 TIMES TO PATIENT ON 19-MAR-13 + ON 26-MAR-13 FOR 30 MIN
     Route: 042
     Dates: start: 20130319
  5. PANTOZOL [Concomitant]

REACTIONS (9)
  - Rhabdomyolysis [Recovered/Resolved]
  - Renal failure [Recovered/Resolved]
  - Capillary leak syndrome [Recovered/Resolved]
  - Nausea [Recovered/Resolved]
  - Vomiting [Recovered/Resolved]
  - Generalised oedema [Recovered/Resolved]
  - Off label use [Unknown]
  - Pericardial effusion [Recovered/Resolved]
  - Pleural effusion [Recovered/Resolved]
